FAERS Safety Report 9345637 (Version 1)
Quarter: 2013Q2

REPORT INFORMATION
  Report Type: Spontaneous
  Country: US (occurrence: US)
  Receive Date: 20130613
  Receipt Date: 20130613
  Transmission Date: 20140414
  Serious: Yes (Hospitalization)
  Sender: FDA-Public Use
  Company Number: US-ASTRAZENECA-2013SE41432

PATIENT
  Age: 57 Year
  Sex: Female
  Weight: 62.1 kg

DRUGS (7)
  1. METROPROLOL SUCCINATE ER [Suspect]
     Indication: HEART RATE IRREGULAR
     Route: 048
     Dates: start: 2012
  2. CRESTOR [Suspect]
     Indication: TYPE IIA HYPERLIPIDAEMIA
     Route: 048
     Dates: start: 20130604
  3. LIPITOR [Suspect]
     Route: 065
     Dates: start: 201302
  4. LIPITOR [Suspect]
     Route: 065
  5. BABY ASPIRIN [Concomitant]
     Indication: CARDIAC DISORDER
  6. BLOOD THINNER [Concomitant]
     Indication: ANTICOAGULANT THERAPY
     Dates: start: 201209
  7. CALCIUM [Concomitant]

REACTIONS (5)
  - Heart rate irregular [Unknown]
  - C-reactive protein increased [Not Recovered/Not Resolved]
  - Myalgia [Recovered/Resolved]
  - Stress [Not Recovered/Not Resolved]
  - Cough [Not Recovered/Not Resolved]
